FAERS Safety Report 6091198-0 (Version None)
Quarter: 2009Q1

REPORT INFORMATION
  Report Type: 
  Country: None (occurrence: None)
  Receive Date: 20090225
  Receipt Date: 20090223
  Transmission Date: 20090719
  Serious: Yes (Hospitalization)
  Sender: FDA-Public Use
  Company Number: US-BRISTOL-MYERS SQUIBB COMPANY-14517239

PATIENT
  Age: 75 Year
  Sex: Male
  Weight: 77 kg

DRUGS (7)
  1. CISPLATIN [Suspect]
     Indication: PHARYNGEAL CANCER STAGE UNSPECIFIED
     Dosage: STARTED ON 27OCT2008.
     Dates: start: 20081205
  2. ERBITUX [Suspect]
     Indication: PHARYNGEAL CANCER STAGE UNSPECIFIED
     Dosage: INITIAL DOSE ON 27OCT2008.
     Dates: start: 20081110
  3. RADIATION THERAPY [Suspect]
     Indication: PHARYNGEAL CANCER STAGE UNSPECIFIED
     Dosage: 1 DF = 70GY. NO. OF FRACTIONS=35; NO. OF DAYS ELAPSED:39.
     Dates: start: 20081212
  4. FENTANYL TRANSDERMAL SYSTEM [Concomitant]
  5. MORPHINE SULFATE [Concomitant]
  6. REGLAN [Concomitant]
  7. ZOFRAN [Concomitant]

REACTIONS (1)
  - PNEUMONITIS [None]
